FAERS Safety Report 18904456 (Version 1)
Quarter: 2021Q1

REPORT INFORMATION
  Report Type: Spontaneous
  Country: CA (occurrence: CA)
  Receive Date: 20210217
  Receipt Date: 20210217
  Transmission Date: 20210420
  Serious: Yes (Hospitalization, Other)
  Sender: FDA-Public Use
  Company Number: CA-B.I. PHARMACEUTICALS,INC./RIDGEFIELD-2021-BI-082626

PATIENT
  Sex: Male

DRUGS (7)
  1. FLUTICASONE. [Suspect]
     Active Substance: FLUTICASONE
     Indication: PRODUCT USED FOR UNKNOWN INDICATION
     Route: 065
  2. ATROVENT [Suspect]
     Active Substance: IPRATROPIUM BROMIDE
     Indication: PRODUCT USED FOR UNKNOWN INDICATION
     Route: 065
  3. ADVAIR HFA [Suspect]
     Active Substance: FLUTICASONE PROPIONATE\SALMETEROL XINAFOATE
     Indication: PRODUCT USED FOR UNKNOWN INDICATION
     Route: 065
  4. PREDNISONE. [Suspect]
     Active Substance: PREDNISONE
     Indication: PRODUCT USED FOR UNKNOWN INDICATION
     Dosage: 4 DOSAGE FORMS
     Route: 065
  5. SALBUTAMOL SULFATE [Suspect]
     Active Substance: ALBUTEROL SULFATE
     Indication: PRODUCT USED FOR UNKNOWN INDICATION
     Route: 065
  6. SPIRIVA [Suspect]
     Active Substance: TIOTROPIUM BROMIDE MONOHYDRATE
     Indication: PRODUCT USED FOR UNKNOWN INDICATION
     Dosage: 2 DOSAGE FORMS
     Route: 065
  7. NUCALA [Concomitant]
     Active Substance: MEPOLIZUMAB
     Indication: ASTHMA
     Route: 042

REACTIONS (14)
  - Weight increased [Recovered/Resolved]
  - Asthma [Recovered/Resolved]
  - Fluid retention [Recovered/Resolved]
  - Therapeutic product effect incomplete [Recovered/Resolved]
  - Blood count abnormal [Recovered/Resolved]
  - Condition aggravated [Recovered/Resolved]
  - Sleep disorder due to a general medical condition [Recovered/Resolved]
  - Thrombosis [Recovered/Resolved]
  - Wheezing [Recovered/Resolved]
  - Haematemesis [Recovered/Resolved]
  - Rales [Recovered/Resolved]
  - Dyspnoea [Recovered/Resolved]
  - Lung disorder [Recovered/Resolved]
  - Skin disorder [Recovered/Resolved]
